FAERS Safety Report 19081137 (Version 1)
Quarter: 2021Q2

REPORT INFORMATION
  Report Type: Spontaneous
  Country: US (occurrence: US)
  Receive Date: 20210401
  Receipt Date: 20210401
  Transmission Date: 20210717
  Serious: No
  Sender: FDA-Public Use
  Company Number: US-LUPIN PHARMACEUTICALS INC.-2021-03807

PATIENT
  Age: 57 Year
  Sex: Female

DRUGS (11)
  1. OXYCODONE [Concomitant]
     Active Substance: OXYCODONE
     Indication: CANCER PAIN
     Dosage: 30 MILLIGRAM, PRN (ROUTE: ADMINISTERED VIA A PEG TUBE)
     Route: 065
  2. OXYCODONE AND ACETAMINOPHEN [Concomitant]
     Active Substance: ACETAMINOPHEN\OXYCODONE HYDROCHLORIDE
     Indication: CANCER PAIN
     Dosage: 1 DOSAGE FORM, PRN (ROUTE: ADMINISTERED VIA A PEG TUBE)
     Route: 065
  3. ABACAVIR;DOLUTEGRAVIR;LAMIVUDINE [Concomitant]
     Active Substance: ABACAVIR SULFATE\DOLUTEGRAVIR SODIUM\LAMIVUDINE
     Indication: HIV INFECTION
     Dosage: 1 DOSAGE FORM, QD (ROUTE: ADMINISTERED VIA A PEG TUBE)
     Route: 065
  4. FAMOTIDINE. [Suspect]
     Active Substance: FAMOTIDINE
     Indication: PREMEDICATION
     Dosage: 40 MILLIGRAM, SINGLE
     Route: 042
  5. ASPIRIN [ACETYLSALICYLIC ACID] [Concomitant]
     Active Substance: ASPIRIN
     Indication: PROPHYLAXIS
     Dosage: 81 MILLIGRAM, QD (ROUTE: ADMINISTERED VIA A PEG TUBE)
     Route: 065
  6. LEDIPASVIR;SOFOSBUVIR [Interacting]
     Active Substance: LEDIPASVIR\SOFOSBUVIR
     Indication: HEPATITIS C
     Dosage: UNK (CRUSH AND DISSOLVE 1 TABLET OF LEDIPASVIR/SOFOSBUVIR IN WATER AND ADMINISTER IT VIA THE PEG TUB
     Route: 065
  7. SODIUM CHLORIDE. [Concomitant]
     Active Substance: SODIUM CHLORIDE
     Indication: VEHICLE SOLUTION USE
     Dosage: 250 ML OF 0.9% SODIUM CHLORIDE INJECTION INFUSED IV OVER 60 MIN
     Route: 042
  8. HYDROXYZINE [Concomitant]
     Active Substance: HYDROXYZINE HYDROCHLORIDE
     Indication: PRURITUS
     Dosage: UNK UNK, QD (10 MG/5 ML BY PEG TUBE AT BEDTIME)
     Route: 065
  9. OLARATUMAB [Concomitant]
     Active Substance: OLARATUMAB
     Indication: SOFT TISSUE SARCOMA
     Dosage: 600 MG (PER 250 ML OF 0.9% SODIUM CHLORIDE INJECTION) INFUSED IV OVER 60 MIN
     Route: 042
  10. OLARATUMAB [Concomitant]
     Active Substance: OLARATUMAB
     Indication: THROAT CANCER
  11. NUTREN 1.0 [Concomitant]
     Indication: PRODUCT USED FOR UNKNOWN INDICATION
     Dosage: UNK (ADMINISTERED VIA THE PEG TUBE)
     Route: 065

REACTIONS (1)
  - Drug interaction [Unknown]
